FAERS Safety Report 8858477 (Version 1)
Quarter: 2012Q4

REPORT INFORMATION
  Report Type: 
  Country: BR (occurrence: BR)
  Receive Date: 20121024
  Receipt Date: 20121024
  Transmission Date: 20130627
  Serious: Yes (Other)
  Sender: FDA-Public Use
  Company Number: BR-AMGEN-BRASP2012066710

PATIENT
  Age: 70 Year
  Sex: Female
  Weight: 74 kg

DRUGS (8)
  1. ENBREL [Suspect]
     Indication: PSORIATIC ARTHROPATHY
     Dosage: 25 mg, 2x/week
     Route: 058
  2. FOLIC ACID [Concomitant]
     Indication: ANAEMIA
     Dosage: UNK UNK, UNK
  3. OMEPRAZOL                          /00661201/ [Concomitant]
     Indication: GASTRIC DISORDER
     Dosage: UNK
  4. NAPROXEN [Concomitant]
     Indication: ANALGESIC THERAPY
     Dosage: UNK
  5. NAPROXEN [Concomitant]
     Indication: ANTIINFLAMMATORY THERAPY
     Dosage: UNK
  6. CITALOPRAM [Concomitant]
     Indication: STRESS
     Dosage: UNK
  7. MIOFLEX                            /00057702/ [Concomitant]
     Indication: PSORIATIC ARTHROPATHY
     Dosage: 25 mg, weekly
  8. PROTOS                             /01556702/ [Concomitant]
     Dosage: UNK

REACTIONS (2)
  - Femur fracture [Unknown]
  - Plaque shift [Unknown]
